FAERS Safety Report 8291124 (Version 4)
Quarter: 2019Q2

REPORT INFORMATION
  Report Type: Spontaneous
  Country: US (occurrence: US)
  Receive Date: 20111214
  Receipt Date: 20190402
  Transmission Date: 20190711
  Serious: Yes (Life-Threatening, Hospitalization, Other)
  Sender: FDA-Public Use
  Company Number: US-ROCHE-1018108

PATIENT
  Age: 59 Year
  Sex: Female

DRUGS (18)
  1. DEXILANT [Concomitant]
     Active Substance: DEXLANSOPRAZOLE
     Route: 065
  2. CRESTOR [Concomitant]
     Active Substance: ROSUVASTATIN CALCIUM
     Route: 065
  3. VITAMIN B12 [Concomitant]
     Active Substance: CYANOCOBALAMIN
     Route: 065
  4. BROVANA [Concomitant]
     Active Substance: ARFORMOTEROL TARTRATE
     Route: 065
  5. HYDROCORTISONE. [Concomitant]
     Active Substance: HYDROCORTISONE
     Route: 065
  6. CEFUROXIME AXETIL. [Concomitant]
     Active Substance: CEFUROXIME AXETIL
     Route: 065
  7. MAXAIR [Concomitant]
     Active Substance: PIRBUTEROL ACETATE
     Route: 065
  8. CHLORDIAZEPOXIDE/CLIDINIUM BROMIDE [Concomitant]
     Active Substance: CHLORDIAZEPOXIDE\CLIDINIUM BROMIDE
     Route: 065
  9. SOLU-CORTEF [Concomitant]
     Active Substance: HYDROCORTISONE SODIUM SUCCINATE
     Route: 065
  10. XOLAIR [Suspect]
     Active Substance: OMALIZUMAB
     Indication: PRODUCT USED FOR UNKNOWN INDICATION
     Route: 065
  11. ALTACE [Concomitant]
     Active Substance: RAMIPRIL
     Route: 065
  12. ASACOL [Concomitant]
     Active Substance: MESALAMINE
     Route: 065
  13. PULMICORT TURBUHALER [Concomitant]
     Active Substance: BUDESONIDE
     Route: 065
  14. BENTYL [Concomitant]
     Active Substance: DICYCLOMINE HYDROCHLORIDE
     Route: 065
  15. PREDNISONE. [Concomitant]
     Active Substance: PREDNISONE
     Route: 065
  16. SPIRIVA [Concomitant]
     Active Substance: TIOTROPIUM BROMIDE MONOHYDRATE
     Route: 065
  17. ZEGERID [Concomitant]
     Active Substance: OMEPRAZOLE\SODIUM BICARBONATE
     Route: 065
  18. DEXLANSOPRAZOLE [Concomitant]
     Active Substance: DEXLANSOPRAZOLE
     Route: 065

REACTIONS (20)
  - Pruritus [Unknown]
  - Diarrhoea [Unknown]
  - Sneezing [Unknown]
  - Pyrexia [Unknown]
  - Addison^s disease [Unknown]
  - Product dose omission [Unknown]
  - Erythema [Unknown]
  - Cough [Unknown]
  - Rhinorrhoea [Unknown]
  - Crohn^s disease [Unknown]
  - Influenza [Unknown]
  - Dyspnoea [Unknown]
  - Escherichia urinary tract infection [Unknown]
  - Pain [Unknown]
  - Dyspnoea [Unknown]
  - Rash [Unknown]
  - Swelling face [Unknown]
  - Skin burning sensation [Unknown]
  - Chills [Unknown]
  - Oropharyngeal pain [Unknown]

NARRATIVE: CASE EVENT DATE: 201104
